FAERS Safety Report 24893695 (Version 2)
Quarter: 2025Q1

REPORT INFORMATION
  Report Type: Spontaneous
  Country: PT (occurrence: PT)
  Receive Date: 20250128
  Receipt Date: 20250304
  Transmission Date: 20250408
  Serious: Yes (Other)
  Sender: AUROBINDO
  Company Number: PT-MLMSERVICE-20250109-PI343304-00290-1

PATIENT
  Age: 29 Year
  Sex: Female

DRUGS (4)
  1. ROPIVACAINE [Suspect]
     Active Substance: ROPIVACAINE
     Indication: Pain management
     Route: 040
  2. ROPIVACAINE [Suspect]
     Active Substance: ROPIVACAINE
     Indication: Epidural analgesia
     Route: 008
  3. SUFENTANIL [Suspect]
     Active Substance: SUFENTANIL
     Indication: Pain management
     Route: 065
  4. SUFENTANIL [Suspect]
     Active Substance: SUFENTANIL
     Indication: Epidural analgesia

REACTIONS (8)
  - Spinal anaesthesia [Unknown]
  - Orthostatic headache [Recovering/Resolving]
  - Inferior vena cava syndrome [Recovering/Resolving]
  - Paraesthesia [Recovering/Resolving]
  - Accidental high spinal anaesthesia [Recovering/Resolving]
  - Hypotension [Unknown]
  - Complication associated with device [Unknown]
  - Maternal exposure during delivery [Unknown]
